FAERS Safety Report 8388261-8 (Version None)
Quarter: 2012Q2

REPORT INFORMATION
  Report Type: 
  Country: None (occurrence: None)
  Receive Date: 20120525
  Receipt Date: 20120514
  Transmission Date: 20120825
  Serious: Yes (Other)
  Sender: FDA-Public Use
  Company Number: IT-PFIZER INC-2011297246

PATIENT
  Age: 54 Year
  Sex: Female

DRUGS (4)
  1. CARVEDILOL [Suspect]
     Dosage: 25 MG, 1X/DAY
     Route: 048
     Dates: start: 20101011
  2. ESIDRIX [Suspect]
     Indication: PRODUCT USED FOR UNKNOWN INDICATION
     Dosage: 25 MG, 1X/DAY
     Route: 048
     Dates: start: 20101011
  3. CITALOPRAM [Suspect]
     Indication: PRODUCT USED FOR UNKNOWN INDICATION
     Dosage: 20 GTT, 1X/DAY
     Route: 048
     Dates: start: 20091011
  4. RAMIPRIL [Suspect]
     Indication: PRODUCT USED FOR UNKNOWN INDICATION
     Dosage: 10 MG, 1X/DAY
     Route: 048
     Dates: start: 20101011

REACTIONS (1)
  - ULCERATIVE KERATITIS [None]
